FAERS Safety Report 5370668-4 (Version None)
Quarter: 2007Q2

REPORT INFORMATION
  Report Type: 
  Country: None (occurrence: None)
  Receive Date: 20070618
  Receipt Date: 20060921
  Transmission Date: 20071010
  Serious: Yes (Other)
  Sender: FDA-Public Use
  Company Number: PHEH2006US07337

PATIENT
  Age: 19 Year
  Sex: Male

DRUGS (12)
  1. GLEEVEC [Suspect]
     Indication: EOSINOPHILIC MYOCARDITIS
     Dosage: 200 MG, QD, ORAL
     Route: 048
     Dates: start: 20060503, end: 20060505
  2. ORGARAN [Suspect]
     Indication: ANTICOAGULATION DRUG LEVEL
     Dosage: 10-30 CC/HR, INTRAVENOUS
     Route: 042
     Dates: start: 20060429
  3. CARVEDILOL [Concomitant]
  4. FLUOXETINE HYDROCHLORIDE [Concomitant]
  5. XANAX [Concomitant]
  6. RABEPRAZOLE SODIUM [Concomitant]
  7. SALOSPIR (ACETYLSALICYLIC ACID) [Concomitant]
  8. PLAVIX [Concomitant]
  9. ALDACTONE [Concomitant]
  10. RAMIPRIL [Concomitant]
  11. LONARID-N (CAFFEINE, CODEINE PHOSPHATE, PARACETAMOL) [Concomitant]
  12. CECLOR [Concomitant]

REACTIONS (5)
  - CRANIOTOMY [None]
  - HAEMATOMA [None]
  - HEADACHE [None]
  - SUBARACHNOID HAEMORRHAGE [None]
  - VISUAL DISTURBANCE [None]
